FAERS Safety Report 8405407-3 (Version None)
Quarter: 2012Q2

REPORT INFORMATION
  Report Type: 
  Country: None (occurrence: None)
  Receive Date: 20120604
  Receipt Date: 20120524
  Transmission Date: 20120825
  Serious: Yes (Hospitalization, Other)
  Sender: FDA-Public Use
  Company Number: US-BIOGENIDEC-2012BI016202

PATIENT
  Sex: Female

DRUGS (1)
  1. TYSABRI [Suspect]
     Indication: MULTIPLE SCLEROSIS
     Route: 042
     Dates: start: 20100423, end: 20120106

REACTIONS (5)
  - LEG AMPUTATION [None]
  - DERMATITIS CONTACT [None]
  - CELLULITIS [None]
  - CARDIAC FAILURE CONGESTIVE [None]
  - IMPAIRED HEALING [None]
